FAERS Safety Report 10700496 (Version 2)
Quarter: 2015Q1

REPORT INFORMATION
  Report Type: Report from Study
  Country: US (occurrence: US)
  Receive Date: 20150109
  Receipt Date: 20150109
  Transmission Date: 20150721
  Serious: Yes (Death, Hospitalization, Other)
  Sender: FDA-Public Use
  Company Number: US-ARIAD-2014US002995

PATIENT

DRUGS (13)
  1. PONATINIB [Suspect]
     Active Substance: PONATINIB
     Dosage: 30 MG, QD
     Route: 048
     Dates: start: 201401
  2. ALLOPURINOL. [Concomitant]
     Active Substance: ALLOPURINOL
     Indication: PRODUCT USED FOR UNKNOWN INDICATION
     Dosage: 300 MG, QD
     Route: 048
  3. PONATINIB [Suspect]
     Active Substance: PONATINIB
     Indication: ACUTE LYMPHOCYTIC LEUKAEMIA
     Dosage: 30 MG, QOD
     Route: 048
     Dates: start: 20140104, end: 20140115
  4. LASIX [Concomitant]
     Active Substance: FUROSEMIDE
     Indication: PRODUCT USED FOR UNKNOWN INDICATION
     Dosage: 20 MG, QD
     Route: 048
  5. NORVASC [Concomitant]
     Active Substance: AMLODIPINE BESYLATE
     Dosage: 10 MG, QD
     Route: 048
     Dates: start: 201401
  6. NORVASC [Concomitant]
     Active Substance: AMLODIPINE BESYLATE
     Indication: HYPERTENSION
     Dosage: 5 MG, UNK
     Dates: end: 201401
  7. XANAX [Concomitant]
     Active Substance: ALPRAZOLAM
     Indication: ANXIETY
     Dosage: 0.25 MG, QID PRN
     Route: 048
  8. DIGOXIN. [Concomitant]
     Active Substance: DIGOXIN
     Indication: PRODUCT USED FOR UNKNOWN INDICATION
     Dosage: 125 ?G, T, TH, SAT, SUNDAY AND 2 TABLETS M, W AND F
     Route: 048
  9. ADVAIR HFA [Concomitant]
     Active Substance: FLUTICASONE PROPIONATE\SALMETEROL XINAFOATE
     Indication: PRODUCT USED FOR UNKNOWN INDICATION
     Dosage: 250 ?G, BID
     Route: 055
  10. METOPROLOL [Concomitant]
     Active Substance: METOPROLOL
     Indication: PRODUCT USED FOR UNKNOWN INDICATION
     Dosage: 50 MG, BID
     Route: 048
  11. DEXAMETHASONE. [Suspect]
     Active Substance: DEXAMETHASONE
     Indication: PRODUCT USED FOR UNKNOWN INDICATION
     Dosage: 20 MG, 4 DAYS ON, 4 DAYS OFF
  12. DEXAMETHASONE. [Suspect]
     Active Substance: DEXAMETHASONE
     Dosage: 8 MG, QD 4 DAYS ON, 4 DAYS OFF UNTIL SEEN BY PHYSICIAN
     Route: 048
  13. BACTRIM [Concomitant]
     Active Substance: SULFAMETHOXAZOLE\TRIMETHOPRIM
     Indication: PRODUCT USED FOR UNKNOWN INDICATION
     Dosage: SINGLE STRENGTH 1 TAB, QD
     Route: 048

REACTIONS (15)
  - Oedema peripheral [Recovered/Resolved]
  - Urinary retention [Unknown]
  - Hyperglycaemia [Recovered/Resolved]
  - Transfusion [Unknown]
  - Fluid overload [Recovered/Resolved]
  - Pneumonia [Recovered/Resolved]
  - Transaminases increased [Unknown]
  - Hypertension [Unknown]
  - Confusional state [Recovered/Resolved]
  - Performance status decreased [Recovered/Resolved]
  - Pleural effusion [Recovered/Resolved]
  - Death [Fatal]
  - Cardiac failure congestive [Unknown]
  - Fatigue [Recovered/Resolved]
  - Oral herpes [Unknown]

NARRATIVE: CASE EVENT DATE: 201401
